FAERS Safety Report 14406238 (Version 2)
Quarter: 2018Q1

REPORT INFORMATION
  Report Type: Spontaneous
  Country: US (occurrence: US)
  Receive Date: 20180118
  Receipt Date: 20180312
  Transmission Date: 20180509
  Serious: Yes (Other)
  Sender: FDA-Public Use
  Company Number: US-PFIZER INC-2018022437

PATIENT
  Age: 83 Year
  Sex: Female
  Weight: 65.77 kg

DRUGS (2)
  1. ADVIL [Suspect]
     Active Substance: IBUPROFEN
     Indication: ARTHRITIS
     Dosage: 4-6 CAPLETS, DAILY (4-6 CAPLETS A DAY)
  2. ADVIL [Suspect]
     Active Substance: IBUPROFEN
     Indication: GAIT DISTURBANCE
     Dosage: TAKING LESS

REACTIONS (6)
  - Poor quality drug administered [Unknown]
  - Gait disturbance [Unknown]
  - Intentional product use issue [Unknown]
  - Facial paralysis [Recovering/Resolving]
  - Product quality issue [Unknown]
  - Product physical issue [Unknown]

NARRATIVE: CASE EVENT DATE: 201709
